FAERS Safety Report 25808248 (Version 3)
Quarter: 2025Q4

REPORT INFORMATION
  Report Type: Spontaneous
  Country: US (occurrence: US)
  Receive Date: 20250916
  Receipt Date: 20251216
  Transmission Date: 20260118
  Serious: Yes (Other)
  Sender: SANDOZ
  Company Number: US-002147023-NVSC2025US142967

PATIENT
  Age: 93 Year
  Sex: Female
  Weight: 49 kg

DRUGS (6)
  1. AZITHROMYCIN [Suspect]
     Active Substance: AZITHROMYCIN
     Indication: Mycobacterium avium complex infection
     Dosage: 250 MG, TIW
     Route: 048
     Dates: start: 20200616, end: 20250714
  2. AZITHROMYCIN [Suspect]
     Active Substance: AZITHROMYCIN
     Dosage: (HELD FOR 3 WEEKS, RESTARTED)
     Route: 065
  3. CLOFAZIMINE [Suspect]
     Active Substance: CLOFAZIMINE
     Indication: Mycobacterium avium complex infection
     Dosage: 100 MG, QD (2 CAPSULES)
     Route: 048
     Dates: start: 20250528, end: 20250714
  4. CLOFAZIMINE [Suspect]
     Active Substance: CLOFAZIMINE
     Dosage: 100 MG, QD
     Route: 048
     Dates: start: 20250813
  5. RIFAMPIN [Suspect]
     Active Substance: RIFAMPIN
     Indication: Mycobacterium avium complex infection
     Dosage: 600 MG, TIW (2 CAPSULES)
     Route: 048
     Dates: start: 20200616, end: 20250714
  6. RIFAMPIN [Suspect]
     Active Substance: RIFAMPIN
     Dosage: UN (HELD FOR 3 WEEKS, RESTARTED)
     Route: 065

REACTIONS (3)
  - Squamous cell carcinoma [Recovered/Resolved]
  - Hallucination, visual [Unknown]
  - Visual impairment [Recovered/Resolved]

NARRATIVE: CASE EVENT DATE: 20250625
